FAERS Safety Report 24800786 (Version 1)
Quarter: 2025Q1

REPORT INFORMATION
  Report Type: Spontaneous
  Country: US (occurrence: None)
  Receive Date: 20250102
  Receipt Date: 20250102
  Transmission Date: 20250408
  Serious: Yes (Life-Threatening)
  Sender: FDA-CTU
  Company Number: None

PATIENT
  Age: 66 Year
  Sex: Male
  Weight: 82.6 kg

DRUGS (1)
  1. DOTAREM [Suspect]
     Active Substance: GADOTERATE MEGLUMINE

REACTIONS (9)
  - Lacrimation increased [None]
  - Choking [None]
  - Wheezing [None]
  - Dyspnoea [None]
  - Swollen tongue [None]
  - Speech disorder [None]
  - Seizure like phenomena [None]
  - Cyanosis [None]
  - Cardio-respiratory arrest [None]

NARRATIVE: CASE EVENT DATE: 20241231
